FAERS Safety Report 9988851 (Version 1)
Quarter: 2014Q1

REPORT INFORMATION
  Report Type: Spontaneous
  Country: US (occurrence: US)
  Receive Date: 20140310
  Receipt Date: 20140310
  Transmission Date: 20141002
  Serious: No
  Sender: FDA-Public Use
  Company Number: US-BAYER-2014-036298

PATIENT
  Age: 67 Year
  Sex: Male

DRUGS (4)
  1. ALEVE CAPLET [Suspect]
     Indication: ARTHRITIS
     Dosage: 1 DF, BID
     Route: 048
     Dates: start: 201309
  2. METFORMIN [Concomitant]
  3. LOSARTAN [Concomitant]
  4. TERAZOSIN [Concomitant]

REACTIONS (1)
  - Incorrect drug administration duration [None]
